FAERS Safety Report 22157507 (Version 4)
Quarter: 2025Q4

REPORT INFORMATION
  Report Type: Spontaneous
  Country: US (occurrence: US)
  Receive Date: 20230330
  Receipt Date: 20251230
  Transmission Date: 20260117
  Serious: Yes (Hospitalization)
  Sender: SANOFI AVENTIS
  Company Number: US-SA-SAC20230329000468

PATIENT
  Age: 42 Year
  Sex: Female

DRUGS (16)
  1. DUPIXENT [Suspect]
     Active Substance: DUPILUMAB
     Indication: Nasal polyps
     Dosage: 300 MG, QOW
     Route: 058
     Dates: start: 20200125
  2. ALBUTEROL [Concomitant]
     Active Substance: ALBUTEROL
  3. CLOBETASOL [Concomitant]
     Active Substance: CLOBETASOL
  4. FAMOTIDINE [Concomitant]
     Active Substance: FAMOTIDINE
  5. MONTELUKAST [Concomitant]
     Active Substance: MONTELUKAST
  6. PANTOPRAZOLE [Concomitant]
     Active Substance: PANTOPRAZOLE
  7. PREDNISONE [Concomitant]
     Active Substance: PREDNISONE
  8. SIMPESSE [Concomitant]
     Active Substance: ETHINYL ESTRADIOL\LEVONORGESTREL
  9. KCL [Concomitant]
     Active Substance: POTASSIUM CHLORIDE
  10. TEZSPIRE [Concomitant]
     Active Substance: TEZEPELUMAB-EKKO
  11. FLUCONAZOLE [Concomitant]
     Active Substance: FLUCONAZOLE
  12. DAYSEE [Concomitant]
     Active Substance: ETHINYL ESTRADIOL\LEVONORGESTREL
  13. HYDROCORT [HYDROCORTISONE] [Concomitant]
  14. FUROSEMIDE [Concomitant]
     Active Substance: FUROSEMIDE
  15. ALBUTEROL SULFATE [Concomitant]
     Active Substance: ALBUTEROL SULFATE
  16. LEVOFLOXACIN [Concomitant]
     Active Substance: LEVOFLOXACIN

REACTIONS (7)
  - Asthma [Unknown]
  - Rhinorrhoea [Unknown]
  - Cough [Unknown]
  - Eye pruritus [Unknown]
  - Impaired quality of life [Unknown]
  - Influenza [Unknown]
  - Therapeutic product effect decreased [Unknown]

NARRATIVE: CASE EVENT DATE: 20250201
